FAERS Safety Report 4352840-5 (Version None)
Quarter: 2004Q2

REPORT INFORMATION
  Report Type: 
  Country: None (occurrence: None)
  Receive Date: 20040504
  Receipt Date: 20040218
  Transmission Date: 20050107
  Serious: Yes (Hospitalization)
  Sender: FDA-Public Use
  Company Number: PHRM2004FR00938

PATIENT
  Age: 54 Year
  Sex: Male
  Weight: 105 kg

DRUGS (1)
  1. LESCOL [Suspect]
     Indication: HYPERCHOLESTEROLAEMIA
     Dosage: 80 MG, QD
     Route: 048
     Dates: end: 20040201

REACTIONS (8)
  - BLOOD CREATINE PHOSPHOKINASE INCREASED [None]
  - BORRELIA INFECTION [None]
  - C-REACTIVE PROTEIN INCREASED [None]
  - FACIAL PALSY [None]
  - MENINGORADICULITIS [None]
  - PAIN IN EXTREMITY [None]
  - RICKETTSIOSIS [None]
  - TENDON DISORDER [None]
